FAERS Safety Report 10045674 (Version 2)
Quarter: 2014Q2

REPORT INFORMATION
  Report Type: Spontaneous
  Country: US (occurrence: US)
  Receive Date: 20140328
  Receipt Date: 20140403
  Transmission Date: 20141212
  Serious: No
  Sender: FDA-Public Use
  Company Number: US-GILEAD-2014-0098145

PATIENT
  Age: 63 Year
  Sex: Female

DRUGS (2)
  1. LETAIRIS [Suspect]
     Indication: PULMONARY ARTERIAL HYPERTENSION
     Dosage: 10 MG, QD
     Route: 048
     Dates: start: 20130215, end: 20140321
  2. LETAIRIS [Suspect]
     Dosage: 5 MG, UNK

REACTIONS (3)
  - Liver function test abnormal [Recovering/Resolving]
  - Hepatic enzyme increased [Unknown]
  - Epistaxis [Unknown]
